FAERS Safety Report 21264968 (Version 1)
Quarter: 2022Q3

REPORT INFORMATION
  Report Type: Spontaneous
  Country: US (occurrence: None)
  Receive Date: 20220826
  Receipt Date: 20220826
  Transmission Date: 20221026
  Serious: Yes (Hospitalization)
  Sender: FDA-Public Use
  Company Number: None

PATIENT
  Age: 86 Year
  Sex: Male
  Weight: 80.2 kg

DRUGS (19)
  1. LENALIDOMIDE [Suspect]
     Active Substance: LENALIDOMIDE
     Indication: Plasma cell myeloma
     Dosage: FREQUENCY : AS DIRECTED;?
     Route: 048
  2. ACIDOPHILUS [Concomitant]
     Active Substance: LACTOBACILLUS ACIDOPHILUS
  3. ACYCLOVIR [Concomitant]
     Active Substance: ACYCLOVIR
  4. ANORO ELLIPTA [Concomitant]
     Active Substance: UMECLIDINIUM BROMIDE\VILANTEROL TRIFENATATE
  5. CIPROFLOXACIN [Concomitant]
     Active Substance: CIPROFLOXACIN
  6. COLACE [Concomitant]
     Active Substance: DOCUSATE SODIUM
  7. COENZYME Q10 [Concomitant]
     Active Substance: DIETARY SUPPLEMENT\UBIDECARENONE
  8. CRESTOR [Concomitant]
     Active Substance: ROSUVASTATIN CALCIUM
  9. FLONASE [Concomitant]
     Active Substance: FLUTICASONE PROPIONATE
  10. HYDROCHLOROTHIAZIDE [Concomitant]
     Active Substance: HYDROCHLOROTHIAZIDE
  11. JARDIANCE [Concomitant]
     Active Substance: EMPAGLIFLOZIN
  12. LISINOPRIL [Concomitant]
     Active Substance: LISINOPRIL
  13. METOPROLOL SUCCINATE [Concomitant]
     Active Substance: METOPROLOL SUCCINATE
  14. MIRALAX [Concomitant]
     Active Substance: POLYETHYLENE GLYCOL 3350
  15. Multivitamin Adult [Concomitant]
  16. PANTOPRAZOLE SODIUM [Concomitant]
     Active Substance: PANTOPRAZOLE SODIUM
  17. POTASSIUM CHLORIDE [Concomitant]
     Active Substance: POTASSIUM CHLORIDE
  18. MINERALS\VITAMINS [Concomitant]
     Active Substance: MINERALS\VITAMINS
  19. TESTOSTERONE [Concomitant]
     Active Substance: TESTOSTERONE

REACTIONS (1)
  - Hospitalisation [None]
